FAERS Safety Report 23989402 (Version 2)
Quarter: 2025Q1

REPORT INFORMATION
  Report Type: Other
  Country: PT (occurrence: PT)
  Receive Date: 20240619
  Receipt Date: 20250116
  Transmission Date: 20250408
  Serious: Yes (Death, Life-Threatening, Hospitalization, Other)
  Sender: BIOCON
  Company Number: None

PATIENT

DRUGS (3)
  1. TRASTUZUMAB [Suspect]
     Active Substance: TRASTUZUMAB
     Indication: Invasive ductal breast carcinoma
     Route: 065
  2. CARBOPLATIN [Suspect]
     Active Substance: CARBOPLATIN
     Indication: Invasive ductal breast carcinoma
     Route: 065
  3. DOCETAXEL [Suspect]
     Active Substance: DOCETAXEL
     Indication: Invasive ductal breast carcinoma
     Route: 065

REACTIONS (4)
  - Cerebrovascular accident [Fatal]
  - Interstitial lung disease [Unknown]
  - Respiratory failure [Unknown]
  - Inflammatory marker increased [Unknown]
